FAERS Safety Report 7795232-9 (Version None)
Quarter: 2011Q3

REPORT INFORMATION
  Report Type: 
  Country: None (occurrence: None)
  Receive Date: 20110930
  Receipt Date: 20110914
  Transmission Date: 20111222
  Serious: Yes (Death)
  Sender: FDA-Public Use
  Company Number: PNIS20110009

PATIENT
  Age: 62 Year
  Sex: Female

DRUGS (3)
  1. METHYLPREDNISOLONE 4MG TAB [Suspect]
     Indication: GLOMERULONEPHRITIS
     Dosage: 0.5 GM, 1 IN 1 D
  2. PREDNISOLONE [Suspect]
     Indication: PYREXIA
     Dosage: 30;45 MG, 1 IN 1 D, ORAL
     Route: 048
  3. PREDNISOLONE [Suspect]
     Indication: ARTHRALGIA
     Dosage: 30;45 MG, 1 IN 1 D, ORAL
     Route: 048

REACTIONS (26)
  - SUICIDAL BEHAVIOUR [None]
  - PSEUDOMONAS INFECTION [None]
  - DUODENAL ULCER PERFORATION [None]
  - THROMBOTIC MICROANGIOPATHY [None]
  - VASCULITIS [None]
  - DECREASED APPETITE [None]
  - BRAIN ABSCESS [None]
  - MYOCARDIAC ABSCESS [None]
  - LUNG ABSCESS [None]
  - ISCHAEMIC ULCER [None]
  - DEPRESSED MOOD [None]
  - DEVICE RELATED INFECTION [None]
  - ACUTE ABDOMEN [None]
  - GLOMERULONEPHRITIS RAPIDLY PROGRESSIVE [None]
  - STREPTOCOCCAL BACTERAEMIA [None]
  - BACTEROIDES INFECTION [None]
  - CONTINUOUS HAEMODIAFILTRATION [None]
  - PLASMAPHERESIS [None]
  - REFUSAL OF TREATMENT BY PATIENT [None]
  - ASPERGILLOSIS [None]
  - PULMONARY HAEMORRHAGE [None]
  - CYTOMEGALOVIRUS GASTROENTERITIS [None]
  - LARGE INTESTINAL ULCER [None]
  - RENAL FAILURE [None]
  - MALNUTRITION [None]
  - PNEUMOCYSTIS JIROVECI PNEUMONIA [None]
